FAERS Safety Report 9301016 (Version 3)
Quarter: 2013Q3

REPORT INFORMATION
  Report Type: Spontaneous
  Country: US (occurrence: US)
  Receive Date: 20130521
  Receipt Date: 20130704
  Transmission Date: 20140515
  Serious: No
  Sender: FDA-Public Use
  Company Number: US-PFIZER INC-2013153126

PATIENT
  Age: 72 Year
  Sex: Male

DRUGS (1)
  1. SUTENT [Suspect]
     Indication: NEOPLASM MALIGNANT
     Dosage: 50 MG, DAILY X 4 WKS, OFF FOR 2
     Route: 048
     Dates: start: 20120803

REACTIONS (2)
  - Oral discomfort [Not Recovered/Not Resolved]
  - Oral pain [Not Recovered/Not Resolved]
